FAERS Safety Report 17233246 (Version 2)
Quarter: 2020Q1

REPORT INFORMATION
  Report Type: Spontaneous
  Country: IT (occurrence: IT)
  Receive Date: 20200104
  Receipt Date: 20200109
  Transmission Date: 20200409
  Serious: Yes (Hospitalization, Other)
  Sender: FDA-Public Use
  Company Number: IT-AUROBINDO-AUR-APL-2019-107968

PATIENT
  Age: 65 Year
  Sex: Female

DRUGS (10)
  1. CASPOFUNGIN [Suspect]
     Active Substance: CASPOFUNGIN
     Indication: ENDOCARDITIS
     Dosage: 70 MILLIGRAM, ONCE A DAY
     Route: 065
  2. ANIDULAFUNGIN [Suspect]
     Active Substance: ANIDULAFUNGIN
     Indication: ENDOCARDITIS CANDIDA
  3. CASPOFUNGIN [Suspect]
     Active Substance: CASPOFUNGIN
     Indication: ANTIFUNGAL TREATMENT
  4. VORICONAZOLE. [Suspect]
     Active Substance: VORICONAZOLE
     Indication: ENDOCARDITIS CANDIDA
  5. VORICONAZOLE. [Suspect]
     Active Substance: VORICONAZOLE
     Indication: ANTIFUNGAL TREATMENT
  6. ANIDULAFUNGIN [Suspect]
     Active Substance: ANIDULAFUNGIN
     Indication: ANTIFUNGAL TREATMENT
  7. VORICONAZOLE. [Suspect]
     Active Substance: VORICONAZOLE
     Indication: ENDOCARDITIS
     Dosage: 200 MILLIGRAM, TWO TIMES A DAY (AFTER RECURRENCE OF ENDOCARDITIS CANDIDA)
     Route: 048
  8. CASPOFUNGIN [Suspect]
     Active Substance: CASPOFUNGIN
     Indication: ENDOCARDITIS CANDIDA
     Dosage: 50 MILLIGRAM, ONCE A DAY
     Route: 065
  9. ANIDULAFUNGIN [Suspect]
     Active Substance: ANIDULAFUNGIN
     Indication: ENDOCARDITIS
     Dosage: 200 MILLIGRAM, ONCE A DAY (DOUBLE DOSAGE)
     Route: 065
  10. AMPHOTERICIN B. [Concomitant]
     Active Substance: AMPHOTERICIN B
     Indication: ENDOCARDITIS CANDIDA
     Dosage: 3 MILLIGRAM/KILOGRAM, ONCE A DAY
     Route: 065

REACTIONS (8)
  - Pathogen resistance [Unknown]
  - Drug resistance [Unknown]
  - Pyrexia [Unknown]
  - Asthenia [Unknown]
  - Dyspnoea [Recovering/Resolving]
  - Chest pain [Recovering/Resolving]
  - Rash pruritic [Recovering/Resolving]
  - Weight decreased [Unknown]
